FAERS Safety Report 21680974 (Version 1)
Quarter: 2022Q4

REPORT INFORMATION
  Report Type: Spontaneous
  Country: US (occurrence: US)
  Receive Date: 20221205
  Receipt Date: 20221205
  Transmission Date: 20230113
  Serious: Yes (Other)
  Sender: FDA-Public Use
  Company Number: US-MLMSERVICE-20221115-3915572-1

PATIENT

DRUGS (2)
  1. PREDNISOLONE [Suspect]
     Active Substance: PREDNISOLONE
     Indication: Keratitis viral
     Dosage: 1 %, QD
     Route: 061
  2. PREDNISOLONE [Suspect]
     Active Substance: PREDNISOLONE
     Dosage: 1 %, QD (RE-STARTED )
     Route: 061

REACTIONS (2)
  - Keratitis bacterial [Recovered/Resolved]
  - Granulicatella infection [Recovered/Resolved]
